FAERS Safety Report 12098982 (Version 1)
Quarter: 2016Q1

REPORT INFORMATION
  Report Type: Spontaneous
  Country: CA (occurrence: CA)
  Receive Date: 20160222
  Receipt Date: 20160222
  Transmission Date: 20160526
  Serious: Yes (Other)
  Sender: FDA-Public Use
  Company Number: CA-TEVA-632422ACC

PATIENT
  Age: 30 Year
  Sex: Female
  Weight: 73 kg

DRUGS (5)
  1. ATROVENT NASAL [Concomitant]
  2. MINOCYCLINE [Suspect]
     Active Substance: MINOCYCLINE\MINOCYCLINE HYDROCHLORIDE
     Indication: ACNE
     Dosage: 100 MILLIGRAM DAILY;
     Route: 048
  3. CLINDOXYL [Concomitant]
     Active Substance: BENZOYL PEROXIDE\CLINDAMYCIN PHOSPHATE
  4. PROTOPIC [Concomitant]
     Active Substance: TACROLIMUS
     Indication: ACNE
  5. OMNARIS [Concomitant]
     Active Substance: CICLESONIDE

REACTIONS (4)
  - Arthralgia [Recovered/Resolved]
  - Myalgia [Recovered/Resolved]
  - Seronegative arthritis [Recovered/Resolved]
  - Polyarteritis nodosa [Recovered/Resolved]
